FAERS Safety Report 4355729-0 (Version None)
Quarter: 2004Q2

REPORT INFORMATION
  Report Type: 
  Country: None (occurrence: None)
  Receive Date: 20040510
  Receipt Date: 20040510
  Transmission Date: 20050107
  Serious: Yes (Other)
  Sender: FDA-Public Use
  Company Number: None

PATIENT
  Age: 55 Year
  Sex: Female
  Weight: 95 kg

DRUGS (2)
  1. TPN [Suspect]
     Indication: COLITIS ULCERATIVE
     Dosage: 1100 ML QD
  2. SANDOSTATIN [Suspect]
     Indication: ILEOSTOMY

REACTIONS (1)
  - PHARMACEUTICAL PRODUCT COMPLAINT [None]
